FAERS Safety Report 8571929-8 (Version None)
Quarter: 2012Q3

REPORT INFORMATION
  Report Type: 
  Country: None (occurrence: None)
  Receive Date: 20120806
  Receipt Date: 20120729
  Transmission Date: 20120928
  Serious: Yes (Death)
  Sender: FDA-Public Use
  Company Number: US-PFIZER INC-2012185640

PATIENT
  Age: 71 Year
  Sex: Male

DRUGS (1)
  1. DILANTIN [Suspect]
     Indication: STATUS EPILEPTICUS

REACTIONS (1)
  - LYMPHADENOPATHY [None]
